FAERS Safety Report 23462431 (Version 3)
Quarter: 2024Q2

REPORT INFORMATION
  Report Type: Report from Study
  Country: US (occurrence: US)
  Receive Date: 20240131
  Receipt Date: 20240624
  Transmission Date: 20240716
  Serious: Yes (Hospitalization, Other)
  Sender: FDA-Public Use
  Company Number: US-BEH-2024168049

PATIENT
  Age: 70 Year
  Sex: Male
  Weight: 77.098 kg

DRUGS (1)
  1. ZEMAIRA [Suspect]
     Active Substance: .ALPHA.1-PROTEINASE INHIBITOR HUMAN
     Indication: Alpha-1 antitrypsin deficiency
     Dosage: UNK UNK, QW
     Route: 042

REACTIONS (6)
  - Gastric polyps [Unknown]
  - Vein rupture [Unknown]
  - Pleurisy [Unknown]
  - Chest pain [Unknown]
  - Therapy interrupted [Unknown]
  - Condition aggravated [Unknown]

NARRATIVE: CASE EVENT DATE: 20240101
